FAERS Safety Report 6093838-9 (Version None)
Quarter: 2009Q1

REPORT INFORMATION
  Report Type: 
  Country: None (occurrence: None)
  Receive Date: 20090224
  Receipt Date: 20090224
  Transmission Date: 20090719
  Serious: Yes (Hospitalization)
  Sender: FDA-Public Use
  Company Number: None

PATIENT
  Sex: Female
  Weight: 56.2 kg

DRUGS (3)
  1. DOCETAXEL [Suspect]
     Indication: CHEMOTHERAPY
     Dosage: 75 MG/M SQUARED ONCE IV 3 CYCLES
     Route: 042
     Dates: start: 20081008, end: 20081120
  2. CISPLATIN [Suspect]
     Indication: CHEMOTHERAPY
     Dosage: 75 MG/M SQUARED ONCE IV 3 CYCLES
     Route: 042
     Dates: start: 20081008, end: 20081120
  3. FLUOROURACIL [Suspect]
     Indication: CHEMOTHERAPY
     Dosage: 750 MG/M SQUARED DAILY X4 DAYS 3 CYCLES
     Route: 042
     Dates: start: 20081008, end: 20081120

REACTIONS (4)
  - DIZZINESS [None]
  - HYPOPHAGIA [None]
  - ORAL PAIN [None]
  - VOMITING [None]
